FAERS Safety Report 4576191-9 (Version None)
Quarter: 2005Q1

REPORT INFORMATION
  Report Type: 
  Country: None (occurrence: None)
  Receive Date: 20050119
  Receipt Date: 20041009
  Transmission Date: 20050727
  Serious: Yes (Life-Threatening, Hospitalization)
  Sender: FDA-Public Use
  Company Number: A03200403461

PATIENT
  Age: 74 Year
  Sex: Female
  Weight: 77.1115 kg

DRUGS (11)
  1. PLAVIX [Suspect]
     Indication: CEREBROVASCULAR ACCIDENT
     Dosage: 75 MG QD - ORAL
     Route: 048
     Dates: start: 20040701, end: 20040918
  2. ASPIRIN [Suspect]
     Indication: CEREBROVASCULAR ACCIDENT
     Dosage: ORAL
     Route: 048
     Dates: start: 20040701, end: 20040901
  3. SPIRONOLACTONE [Concomitant]
  4. ACETAMINOPHEN WITH PROPOXYPHENE HCL TAB [Concomitant]
  5. LIDOCAINE [Concomitant]
  6. METOPROLOL TARTRATE [Concomitant]
  7. AMLODIPINE BESYLATE [Concomitant]
  8. FLUPHENAZINE HCL [Concomitant]
  9. PANTOPRAZOLE SODIUM [Concomitant]
  10. THIAMAZOLE [Concomitant]
  11. SIMVASTATIN [Concomitant]

REACTIONS (4)
  - CHROMATURIA [None]
  - HAEMOGLOBIN DECREASED [None]
  - HAEMORRHAGE [None]
  - RECTAL HAEMORRHAGE [None]
